FAERS Safety Report 4957755-7 (Version None)
Quarter: 2006Q1

REPORT INFORMATION
  Report Type: 
  Country: None (occurrence: None)
  Receive Date: 20060330
  Receipt Date: 20060321
  Transmission Date: 20060701
  Serious: Yes (Death, Other)
  Sender: FDA-Public Use
  Company Number: PHBS2006TR04309

PATIENT
  Age: 25 Year
  Sex: Female

DRUGS (4)
  1. CYCLOSPORINE [Suspect]
     Indication: RENAL TRANSPLANT
     Route: 065
  2. MYCOPHENOLATE MOFETIL [Suspect]
     Indication: RENAL TRANSPLANT
     Route: 065
  3. AZATHIOPRINE [Suspect]
     Indication: RENAL TRANSPLANT
     Route: 065
  4. PREDNISOLONE [Suspect]
     Indication: RENAL TRANSPLANT

REACTIONS (6)
  - ABDOMINAL MASS [None]
  - DIFFUSE LARGE B-CELL LYMPHOMA [None]
  - EPSTEIN-BARR VIRUS ANTIBODY POSITIVE [None]
  - GASTROINTESTINAL HAEMORRHAGE [None]
  - LYMPHOPROLIFERATIVE DISORDER [None]
  - PNEUMONIA [None]
